FAERS Safety Report 9790651 (Version 1)
Quarter: 2013Q4

REPORT INFORMATION
  Report Type: Spontaneous
  Country: US (occurrence: US)
  Receive Date: 20131231
  Receipt Date: 20131231
  Transmission Date: 20140711
  Serious: No
  Sender: FDA-Public Use
  Company Number: US-PFIZER INC-2013368940

PATIENT
  Age: 59 Year
  Sex: Female

DRUGS (8)
  1. LIPITOR [Suspect]
     Dosage: UNK
  2. ZITHROMAX [Suspect]
     Dosage: UNK
  3. DOXYCYCLINE HYCLATE [Suspect]
     Dosage: UNK
  4. DARVON [Suspect]
     Dosage: UNK
  5. ULTRACET [Suspect]
     Dosage: UNK
  6. CODEINE [Suspect]
     Dosage: UNK
  7. ASPIRIN [Suspect]
     Dosage: UNK
  8. VOCET [Suspect]
     Dosage: UNK

REACTIONS (1)
  - Drug hypersensitivity [Unknown]
